FAERS Safety Report 20923757 (Version 1)
Quarter: 2022Q2

REPORT INFORMATION
  Report Type: Spontaneous
  Country: US (occurrence: None)
  Receive Date: 20220606
  Receipt Date: 20220606
  Transmission Date: 20220720
  Serious: No
  Sender: FDA-Public Use
  Company Number: None

PATIENT
  Sex: Female
  Weight: 99.3 kg

DRUGS (19)
  1. MEKINIST [Suspect]
     Active Substance: TRAMETINIB DIMETHYL SULFOXIDE
     Indication: Malignant melanoma
     Dosage: FREQUENCY : EVERY OTHER DAY;?
     Route: 048
  2. ALPRAZOLAM [Concomitant]
     Active Substance: ALPRAZOLAM
  3. AMLODIPINE [Concomitant]
     Active Substance: AMLODIPINE BESYLATE
  4. BESYLATE [Concomitant]
  5. BIOTIN [Concomitant]
     Active Substance: BIOTIN
  6. VITAMIN B12 [Concomitant]
     Active Substance: CYANOCOBALAMIN
  7. FORTE [Concomitant]
  8. FLUOXETINE HYDROCHLORIDE [Concomitant]
     Active Substance: FLUOXETINE HYDROCHLORIDE
  9. FUROSEMIDE [Concomitant]
     Active Substance: FUROSEMIDE
  10. GABAPENTIN [Concomitant]
     Active Substance: GABAPENTIN
  11. HYDROXYZINE HYDROCHLORIDE [Concomitant]
     Active Substance: HYDROXYZINE HYDROCHLORIDE
  12. LACTULOSE [Concomitant]
     Active Substance: LACTULOSE
  13. MELOXICAM [Concomitant]
     Active Substance: MELOXICAM
  14. JULTIVITAMIN [Concomitant]
  15. TAFINLAR 75MG CAPSULE [Concomitant]
  16. TRAMADOL HYDROCHLORIDE [Concomitant]
     Active Substance: TRAMADOL HYDROCHLORIDE
  17. VITAMIN C [Concomitant]
     Active Substance: ASCORBIC ACID
  18. ZINC [Concomitant]
     Active Substance: ZINC
  19. GLUCONATE [Concomitant]

REACTIONS (7)
  - Chills [None]
  - Asthenia [None]
  - Pyrexia [None]
  - Sensitive skin [None]
  - Hypoaesthesia [None]
  - Dyspnoea [None]
  - Lymphadenopathy [None]
